FAERS Safety Report 10341317 (Version 1)
Quarter: 2014Q3

REPORT INFORMATION
  Report Type: Spontaneous
  Country: US (occurrence: US)
  Receive Date: 20140725
  Receipt Date: 20140725
  Transmission Date: 20150326
  Serious: Yes (Other)
  Sender: FDA-Public Use
  Company Number: US-AMGEN-USASP2014054527

PATIENT
  Age: 76 Year
  Sex: Female

DRUGS (1)
  1. PROLIA [Suspect]
     Active Substance: DENOSUMAB
     Indication: OSTEOPOROSIS POSTMENOPAUSAL
     Dosage: UNK
     Route: 065

REACTIONS (7)
  - Arthralgia [Unknown]
  - Back pain [Unknown]
  - Vascular cauterisation [Unknown]
  - Cholecystectomy [Unknown]
  - Appendicectomy [Unknown]
  - Acne [Unknown]
  - Pain in extremity [Unknown]
